FAERS Safety Report 9520116 (Version 1)
Quarter: 2013Q3

REPORT INFORMATION
  Report Type: Spontaneous
  Country: NL (occurrence: NL)
  Receive Date: 20130912
  Receipt Date: 20130912
  Transmission Date: 20140515
  Serious: Yes (Life-Threatening, Hospitalization, Other)
  Sender: FDA-Public Use
  Company Number: NL-PFIZER INC-2013263309

PATIENT
  Age: 53 Year
  Sex: Female
  Weight: 86 kg

DRUGS (5)
  1. VENLAFAXINE HCL [Suspect]
     Indication: DEPRESSION
     Dosage: UNK
     Dates: start: 20041111
  2. VENLAFAXINE HCL [Interacting]
     Dosage: 150 MG, DAILY
  3. VENLAFAXINE HCL [Interacting]
     Dosage: 37.5 MG, DAILY
  4. OXYCODONE [Interacting]
     Indication: HERNIA
     Dosage: 20 MG, 4X/DAY
     Dates: start: 20080715, end: 20080729
  5. MICARDIS [Concomitant]
     Dosage: 40 MG, 1X/DAY
     Dates: start: 20090802

REACTIONS (4)
  - Carotid artery occlusion [Unknown]
  - Drug interaction [Recovering/Resolving]
  - Blood cholesterol increased [Recovering/Resolving]
  - Hypertension [Recovering/Resolving]
